FAERS Safety Report 26119741 (Version 3)
Quarter: 2025Q4

REPORT INFORMATION
  Report Type: Report from Study
  Country: CN (occurrence: CN)
  Receive Date: 20251204
  Receipt Date: 20251223
  Transmission Date: 20260117
  Serious: Yes (Death, Hospitalization, Other)
  Sender: NOVARTIS
  Company Number: CN-002147023-NVSC2025CN182328

PATIENT
  Age: 63 Year
  Sex: Female
  Weight: 72 kg

DRUGS (8)
  1. FEMARA [Suspect]
     Active Substance: LETROZOLE
     Indication: Breast cancer
     Dosage: 2.5 MG, QD
     Route: 048
     Dates: start: 20250526, end: 20250915
  2. RIBOCICLIB [Suspect]
     Active Substance: RIBOCICLIB
     Indication: Breast cancer
     Dosage: 600 MG, QD
     Route: 048
     Dates: start: 20250526, end: 20250608
  3. RIBOCICLIB [Suspect]
     Active Substance: RIBOCICLIB
     Dosage: 600 MG, QD
     Route: 048
     Dates: start: 20250613, end: 20250619
  4. RIBOCICLIB [Suspect]
     Active Substance: RIBOCICLIB
     Dosage: 600 MG, QD
     Route: 048
     Dates: start: 20250709, end: 20250714
  5. RIBOCICLIB [Suspect]
     Active Substance: RIBOCICLIB
     Dosage: 400 MG, QD
     Route: 048
     Dates: start: 20250723, end: 20250729
  6. RIBOCICLIB [Suspect]
     Active Substance: RIBOCICLIB
     Dosage: 400 MG, QD
     Route: 048
     Dates: start: 20250806, end: 20250817
  7. RIBOCICLIB [Suspect]
     Active Substance: RIBOCICLIB
     Dosage: 200 MG, QD
     Route: 048
     Dates: start: 20250825, end: 20250826
  8. RIBOCICLIB [Suspect]
     Active Substance: RIBOCICLIB
     Dosage: 200 MG, QD
     Route: 048
     Dates: start: 20250904, end: 20250909

REACTIONS (35)
  - Respiratory failure [Fatal]
  - Chest discomfort [Fatal]
  - Dyspnoea [Fatal]
  - Interstitial lung disease [Unknown]
  - Hypokalaemia [Unknown]
  - Pericardial effusion [Unknown]
  - Deep vein thrombosis [Unknown]
  - Pneumonia klebsiella [Unknown]
  - Malignant neoplasm progression [Unknown]
  - Breast cancer [Unknown]
  - Nephrolithiasis [Not Recovered/Not Resolved]
  - Enterococcal infection [Unknown]
  - Ischaemic cardiomyopathy [Unknown]
  - Hydronephrosis [Unknown]
  - Pneumonia [Unknown]
  - Pneumonia acinetobacter [Unknown]
  - Pleural effusion [Unknown]
  - Hypoproteinaemia [Unknown]
  - Ureterolithiasis [Unknown]
  - Chronic gastritis [Unknown]
  - Pyrexia [Unknown]
  - Effusion [Unknown]
  - Hypertension [Unknown]
  - Oedema [Unknown]
  - Malnutrition [Not Recovered/Not Resolved]
  - Dermatitis contact [Not Recovered/Not Resolved]
  - Hypoalbuminaemia [Not Recovered/Not Resolved]
  - Arteriosclerosis [Unknown]
  - Cardiomegaly [Unknown]
  - Hyponatraemia [Unknown]
  - Oxygen saturation decreased [Unknown]
  - Retracted nipple [Unknown]
  - Anaemia [Not Recovered/Not Resolved]
  - Peripheral vein thrombosis [Not Recovered/Not Resolved]
  - Off label use [Unknown]

NARRATIVE: CASE EVENT DATE: 20250904
